FAERS Safety Report 4354575-1 (Version None)
Quarter: 2004Q2

REPORT INFORMATION
  Report Type: 
  Country: None (occurrence: None)
  Receive Date: 20040503
  Receipt Date: 20040415
  Transmission Date: 20050107
  Serious: No
  Sender: FDA-Public Use
  Company Number: DSA_24246_2004

PATIENT
  Age: 79 Year
  Sex: Female
  Weight: 32.659 kg

DRUGS (6)
  1. CARDIZEM CD [Suspect]
     Indication: SYSTOLIC HYPERTENSION
     Dosage: 300 MG Q DAY PO
     Route: 048
  2. CARDIZEM CD [Suspect]
     Indication: SYSTOLIC HYPERTENSION
  3. AZMACORT [Concomitant]
  4. SEREVENT [Concomitant]
  5. ASPIRIN [Concomitant]
  6. DIDRONEL [Concomitant]

REACTIONS (1)
  - BLOOD PRESSURE INADEQUATELY CONTROLLED [None]
